FAERS Safety Report 6948843 (Version 2)
Quarter: 2020Q3

REPORT INFORMATION
  Report Type: Report from Study
  Country: GB (occurrence: GB)
  Receive Date: 20090323
  Receipt Date: 20090402
  Transmission Date: 20201105
  Serious: Yes (Hospitalization)
  Sender: FDA-Public Use
  Company Number: GB-ROCHE-620594

PATIENT
  Age: 84 Year
  Sex: Female
  Weight: 63.5 kg

DRUGS (9)
  1. IBANDRONIC ACID. [Suspect]
     Active Substance: IBANDRONIC ACID
     Indication: OSTEOPOROSIS
     Dosage: ALSO REPORTED AS INDICATED FOR PREVIOUS FRACTURE AND LONG TERM STEROIDS.
     Route: 048
     Dates: start: 20071112
  2. ASPIRIN. [Concomitant]
     Active Substance: ASPIRIN
  3. CITALOPRAM [Concomitant]
     Active Substance: CITALOPRAM HYDROBROMIDE
  4. FRUSEMIDE [Concomitant]
     Active Substance: FUROSEMIDE
  5. SIMVASTATIN. [Concomitant]
     Active Substance: SIMVASTATIN
     Dosage: REPORTED AS  ONCE AT NIGHT
  6. RAMIPRIL. [Concomitant]
     Active Substance: RAMIPRIL
  7. DIGITALIS [Concomitant]
     Active Substance: DIGITALIS
     Indication: PRODUCT USED FOR UNKNOWN INDICATION
     Route: 065
  8. PREDNISOLONE. [Concomitant]
     Active Substance: PREDNISOLONE
  9. LANSOPRAZOLE. [Concomitant]
     Active Substance: LANSOPRAZOLE

REACTIONS (3)
  - Dyspnoea [Recovering/Resolving]
  - Atrial fibrillation [Recovering/Resolving]
  - Cardiac failure [Unknown]

NARRATIVE: CASE EVENT DATE: 20090201
